FAERS Safety Report 9924691 (Version 1)
Quarter: 2014Q1

REPORT INFORMATION
  Report Type: Spontaneous
  Country: JP (occurrence: JP)
  Receive Date: 20140226
  Receipt Date: 20140226
  Transmission Date: 20141002
  Serious: No
  Sender: FDA-Public Use
  Company Number: JP-JNJFOC-20140213130

PATIENT
  Sex: Male

DRUGS (3)
  1. TRAMCET [Suspect]
     Indication: PAIN
     Route: 048
  2. TRAMCET [Suspect]
     Indication: PAIN
     Dosage: 8 TABLETS PER DAY
     Route: 048
  3. TRAMCET [Suspect]
     Indication: PAIN
     Dosage: 4 TABLETS PER DAY
     Route: 048
     Dates: start: 2013

REACTIONS (3)
  - Heart rate decreased [Unknown]
  - Pain [Unknown]
  - Nausea [Unknown]
